FAERS Safety Report 13180558 (Version 1)
Quarter: 2017Q1

REPORT INFORMATION
  Report Type: Spontaneous
  Country: US (occurrence: US)
  Receive Date: 20170202
  Receipt Date: 20170202
  Transmission Date: 20170428
  Serious: Yes (Hospitalization)
  Sender: FDA-Public Use
  Company Number: PHEH2017US002310

PATIENT
  Sex: Female

DRUGS (1)
  1. COSENTYX [Suspect]
     Active Substance: SECUKINUMAB
     Indication: PSORIASIS
     Dosage: 300 MG, QMO
     Route: 058
     Dates: start: 20160610, end: 20161109

REACTIONS (4)
  - Hemiparesis [Unknown]
  - Speech disorder [Unknown]
  - Cerebrovascular accident [Unknown]
  - Cerebral artery thrombosis [Unknown]

NARRATIVE: CASE EVENT DATE: 20161109
